FAERS Safety Report 7361320-4 (Version None)
Quarter: 2011Q1

REPORT INFORMATION
  Report Type: 
  Country: None (occurrence: None)
  Receive Date: 20110318
  Receipt Date: 20110311
  Transmission Date: 20110831
  Serious: Yes (Hospitalization)
  Sender: FDA-Public Use
  Company Number: B0699380A

PATIENT
  Sex: Male

DRUGS (1)
  1. AVANDIA [Suspect]
     Indication: DIABETES MELLITUS
     Route: 048
     Dates: end: 20070101

REACTIONS (5)
  - HYPERLIPIDAEMIA [None]
  - HYPERTENSION [None]
  - LIVER INJURY [None]
  - CHEST PAIN [None]
  - FLUID RETENTION [None]
